FAERS Safety Report 24968918 (Version 3)
Quarter: 2025Q4

REPORT INFORMATION
  Report Type: Report from Study
  Country: US (occurrence: US)
  Receive Date: 20250214
  Receipt Date: 20251203
  Transmission Date: 20260118
  Serious: Yes (Other)
  Sender: AMNEAL
  Company Number: US-AMNEAL PHARMACEUTICALS-2024-AMRX-03241

PATIENT
  Sex: Male
  Weight: 77.098 kg

DRUGS (9)
  1. CARBIDOPA\LEVODOPA [Suspect]
     Active Substance: CARBIDOPA\LEVODOPA
     Indication: Product used for unknown indication
     Dosage: 23.75/95MG, 4 CAPSULES, 3 /DAY
     Route: 048
  2. CARBIDOPA\LEVODOPA [Suspect]
     Active Substance: CARBIDOPA\LEVODOPA
     Dosage: 23.75/95MG, 2 CAPSULES, 2 /DAY
     Route: 048
     Dates: start: 20240703
  3. CARBIDOPA\LEVODOPA [Suspect]
     Active Substance: CARBIDOPA\LEVODOPA
     Dosage: 23.75/95MG, 2 CAPSULES, 3 /DAY
     Route: 048
     Dates: start: 20240703
  4. CARBIDOPA\LEVODOPA [Suspect]
     Active Substance: CARBIDOPA\LEVODOPA
     Dosage: 61.25-245 MG TAKE 1 CAPSULE BY MOUTH 3 TIMES A DAY AND 48.75-195 MG TAKE 1 CAPSULE BY MOUTH 3 TIMES
     Route: 048
     Dates: start: 20240906
  5. CARBIDOPA\LEVODOPA [Suspect]
     Active Substance: CARBIDOPA\LEVODOPA
     Dosage: 61.25/245 MG TAKE 2 CAPSULES BY MOUTH 3 TIMES DAILY
     Route: 048
     Dates: start: 20241107
  6. CARBIDOPA\LEVODOPA [Suspect]
     Active Substance: CARBIDOPA\LEVODOPA
     Dosage: 61.25-245MG 2 CAPSULES THREE TIMES A DAY ALONG WITH RYTARY 48.75-195 1 CAPSULE THREE TIMES A DAY
     Route: 065
     Dates: start: 20241209
  7. CARBIDOPA\LEVODOPA [Suspect]
     Active Substance: CARBIDOPA\LEVODOPA
     Dosage: 48.75-195 MG; ONE CAPSULE THREE TIMES A DAY AND 61.25-245 MG; TWO CAPSULE THREE TIMES A DAY
     Route: 048
  8. CARBIDOPA\LEVODOPA [Suspect]
     Active Substance: CARBIDOPA\LEVODOPA
     Dosage: 23.75-95 MG, 3 CAPSULES, 3 /DAY
     Route: 048
     Dates: start: 20251007
  9. CARBIDOPA\LEVODOPA [Suspect]
     Active Substance: CARBIDOPA\LEVODOPA
     Dosage: 23.75-95 MG, 3 CAPSULES, 3 /DAY
     Route: 048

REACTIONS (2)
  - Parkinson^s disease [Unknown]
  - Tremor [Recovered/Resolved]
